FAERS Safety Report 6267138-8 (Version None)
Quarter: 2009Q3

REPORT INFORMATION
  Report Type: 
  Country: None (occurrence: None)
  Receive Date: 20090709
  Receipt Date: 20090707
  Transmission Date: 20100115
  Serious: Yes (Disabling, Other)
  Sender: FDA-Public Use
  Company Number: ADR8242009 (MHRA ADR NO.: 20431750-

PATIENT
  Sex: Male

DRUGS (4)
  1. RISPERIDONE [Suspect]
     Indication: DRUG USE FOR UNKNOWN INDICATION
  2. DIAZEPAM [Concomitant]
  3. HALOPERIDOL [Concomitant]
  4. CLOPIXOL [Concomitant]

REACTIONS (16)
  - AGITATION [None]
  - APATHY [None]
  - DELUSION [None]
  - DEPRESSED MOOD [None]
  - DISTURBANCE IN ATTENTION [None]
  - DYSARTHRIA [None]
  - EMOTIONAL DISORDER [None]
  - EMOTIONAL DISTRESS [None]
  - FALL [None]
  - GAIT DISTURBANCE [None]
  - INDIFFERENCE [None]
  - LIP EXFOLIATION [None]
  - NEUROLEPTIC MALIGNANT SYNDROME [None]
  - QUALITY OF LIFE DECREASED [None]
  - SALIVARY HYPERSECRETION [None]
  - URINARY INCONTINENCE [None]
